FAERS Safety Report 10910912 (Version 2)
Quarter: 2015Q2

REPORT INFORMATION
  Report Type: Spontaneous
  Country: US (occurrence: US)
  Receive Date: 20150312
  Receipt Date: 20150518
  Transmission Date: 20150821
  Serious: No
  Sender: FDA-Public Use
  Company Number: US-009507513-1503USA004085

PATIENT
  Age: 21 Year
  Sex: Female
  Weight: 89.34 kg

DRUGS (1)
  1. NEXPLANON [Suspect]
     Active Substance: ETONOGESTREL
     Indication: CONTRACEPTION
     Dosage: 68 MG, 3 YEARS,  UPPER LEFT ARM
     Route: 059
     Dates: start: 201411, end: 20150424

REACTIONS (3)
  - Muscle spasms [Recovered/Resolved]
  - Vaginal haemorrhage [Recovered/Resolved]
  - Abdominal pain upper [Unknown]

NARRATIVE: CASE EVENT DATE: 201412
